FAERS Safety Report 9897659 (Version 2)
Quarter: 2014Q3

REPORT INFORMATION
  Report Type: Spontaneous
  Country: US (occurrence: US)
  Receive Date: 20140214
  Receipt Date: 20140814
  Transmission Date: 20150326
  Serious: Yes (Hospitalization, Other)
  Sender: FDA-Public Use
  Company Number: US-009507513-1402USA006720

PATIENT
  Sex: Female
  Weight: 79.14 kg

DRUGS (1)
  1. NUVARING [Suspect]
     Active Substance: ETHINYL ESTRADIOL\ETONOGESTREL
     Indication: PRODUCT USED FOR UNKNOWN INDICATION
     Dosage: UNK
     Route: 067
     Dates: start: 20091119

REACTIONS (16)
  - Gastric ulcer [Unknown]
  - Gastric bypass [Unknown]
  - Venous thrombosis [Unknown]
  - Venous thrombosis [Unknown]
  - Iron deficiency anaemia [Unknown]
  - Arrhythmia [Unknown]
  - Skin induration [Unknown]
  - Urinary tract infection [Unknown]
  - Depression [Unknown]
  - Opiates positive [Unknown]
  - Deep vein thrombosis [Unknown]
  - Adverse event [Unknown]
  - Thrombophlebitis [Unknown]
  - Cellulitis [Unknown]
  - Sick sinus syndrome [Unknown]
  - Groin pain [Unknown]

NARRATIVE: CASE EVENT DATE: 201002
